FAERS Safety Report 19031384 (Version 3)
Quarter: 2022Q1

REPORT INFORMATION
  Report Type: Spontaneous
  Country: US (occurrence: US)
  Receive Date: 20210319
  Receipt Date: 20220111
  Transmission Date: 20220423
  Serious: Yes (Life-Threatening, Disabling)
  Sender: FDA-Public Use
  Company Number: US-AMERICAN REGENT INC-2021000669

PATIENT
  Age: 51 Year
  Sex: Female
  Weight: 114.47 kg

DRUGS (14)
  1. FERRIC CARBOXYMALTOSE [Suspect]
     Active Substance: FERRIC CARBOXYMALTOSE
     Indication: Iron deficiency anaemia
     Dosage: MULTIPLE INJECTIONS BETWEEN 2016 AND 2019
     Dates: start: 2016, end: 2019
  2. FERRIC CARBOXYMALTOSE [Suspect]
     Active Substance: FERRIC CARBOXYMALTOSE
     Dosage: 750 MILLIGRAM, ONCE
     Route: 042
     Dates: start: 20180914, end: 20180914
  3. FERRIC CARBOXYMALTOSE [Suspect]
     Active Substance: FERRIC CARBOXYMALTOSE
     Dosage: 750 MILLIGRAM, ONCE
     Route: 042
     Dates: start: 20180921, end: 20180921
  4. FERRIC CARBOXYMALTOSE [Suspect]
     Active Substance: FERRIC CARBOXYMALTOSE
     Dosage: 750 MILLIGRAM, ONCE
     Route: 042
     Dates: start: 20190104, end: 20190104
  5. FERRIC CARBOXYMALTOSE [Suspect]
     Active Substance: FERRIC CARBOXYMALTOSE
     Dosage: 750 MILLIGRAM, ONCE
     Route: 042
     Dates: start: 20190111, end: 20190111
  6. VITAMIN B12                        /00056201/ [Concomitant]
     Indication: Vitamin B12 deficiency
     Dosage: 1000 MILLIGRAM, SINGLE
     Route: 030
  7. VITAMIN B12                        /00056201/ [Concomitant]
     Indication: Anaemia vitamin B12 deficiency
  8. PANTOPRAZOLE [Concomitant]
     Active Substance: PANTOPRAZOLE
     Indication: Product used for unknown indication
     Dosage: 20 MILLIGRAM, QD
     Route: 048
  9. FLURBIPROFEN [Concomitant]
     Active Substance: FLURBIPROFEN
     Indication: Product used for unknown indication
     Dosage: 100 MILLIGRAM, BID
     Route: 048
  10. VITAMIN B12                        /00056201/ [Concomitant]
     Indication: Vitamin B12 deficiency
     Dosage: UNK
     Route: 060
  11. VITAMIN B12                        /00056201/ [Concomitant]
     Indication: Anaemia vitamin B12 deficiency
  12. VITAMIN C                          /00008001/ [Concomitant]
     Indication: Supplementation therapy
     Dosage: UNK
     Route: 065
  13. FERROUS SULFATE [Concomitant]
     Active Substance: FERROUS SULFATE
     Indication: Iron deficiency anaemia
     Dosage: 325 MILLIGRAM, BID
     Route: 048
  14. MULTIVITAMIN                       /07504101/ [Concomitant]
     Indication: Product used for unknown indication
     Dosage: UNK UNK, QD
     Route: 065

REACTIONS (7)
  - Pain [Not Recovered/Not Resolved]
  - Arrhythmia [Not Recovered/Not Resolved]
  - Hypophosphataemia [Not Recovered/Not Resolved]
  - Anhedonia [Not Recovered/Not Resolved]
  - Emotional distress [Not Recovered/Not Resolved]
  - Anxiety [Not Recovered/Not Resolved]
  - Product quality issue [Unknown]

NARRATIVE: CASE EVENT DATE: 20190116
